FAERS Safety Report 16522031 (Version 1)
Quarter: 2019Q3

REPORT INFORMATION
  Report Type: Spontaneous
  Country: IT (occurrence: IT)
  Receive Date: 20190703
  Receipt Date: 20190703
  Transmission Date: 20191004
  Serious: Yes (Hospitalization)
  Sender: FDA-Public Use
  Company Number: IT-TEVA-2019-IT-1072092

PATIENT
  Age: 65 Year
  Sex: Male
  Weight: 80 kg

DRUGS (15)
  1. ISORAM [Concomitant]
     Route: 042
     Dates: start: 20190516, end: 20190606
  2. CLENIL? 100 MICROGRAMMI POLVERE PER INALAZIONE [Concomitant]
     Indication: ASTHMA
     Route: 055
     Dates: start: 20190523, end: 20190614
  3. ESOMEPRAZOLO EG 20 MG CAPSULE RIGIDE GASTRORESISTENTI [Concomitant]
     Indication: GASTROOESOPHAGEAL REFLUX DISEASE
     Route: 048
     Dates: start: 20190502, end: 20190614
  4. PIPERACILLIN AND TAZOBACTAM [Suspect]
     Active Substance: PIPERACILLIN SODIUM\TAZOBACTAM SODIUM
     Indication: PNEUMONITIS
     Route: 042
     Dates: start: 20190605, end: 20190610
  5. BRILIQUE 90 MG FILM-COATED TABLETS [Concomitant]
     Active Substance: TICAGRELOR
     Indication: ARTERIAL THROMBOSIS
     Route: 048
     Dates: start: 20190502, end: 20190614
  6. BINOCRIT 10,000 IU/1 ML SOLUTION FOR INJECTION IN A PRE-FILLED SYRINGE [Concomitant]
     Indication: NEPHROGENIC ANAEMIA
     Route: 058
     Dates: start: 20190516, end: 20190614
  7. LINEZOLID. [Suspect]
     Active Substance: LINEZOLID
     Indication: PNEUMONITIS
     Route: 042
     Dates: start: 20190605, end: 20190610
  8. CARDICOR 5 MG COMPRESSE RIVESTITE CON FILM [Concomitant]
     Indication: CARDIAC FAILURE CHRONIC
     Route: 048
     Dates: start: 20190517, end: 20190614
  9. LOPERAMIDE ANGELINI 2 MG CAPSULE RIGIDE [Concomitant]
     Indication: DIARRHOEA
     Route: 048
     Dates: start: 20190606, end: 20190612
  10. CLEXANE [Concomitant]
     Active Substance: ENOXAPARIN SODIUM
     Indication: EMBOLISM VENOUS
     Route: 058
     Dates: start: 20190502, end: 20190614
  11. AMBROXOL DOROM 15 MG/2 ML SOLUZIONE DA NEBULIZZARE [Concomitant]
     Route: 055
     Dates: start: 20190523, end: 20190614
  12. METFORMINA EUROGENERICI 500 MG COMPRESSE RIVESTITE CON FILM [Concomitant]
     Indication: DIABETES MELLITUS
     Route: 048
     Dates: start: 20190523, end: 20190606
  13. JUMEX 5 MG COMPRESSE [Concomitant]
     Indication: PARKINSON^S DISEASE
     Route: 048
     Dates: start: 20190517, end: 20190606
  14. VANCOMICINA HIKMA 500 MG POLVERE PER SOLUZIONE PER INFUSIONE E PER SOL [Concomitant]
     Indication: INFECTION
     Route: 048
     Dates: start: 20190529, end: 20190607
  15. LEVOTIROXINA TEVA 50 MICROGRAMMI COMPRESSE [Concomitant]
     Indication: HYPOTHYROIDISM
     Route: 048
     Dates: start: 20190502, end: 20190614

REACTIONS (3)
  - Drug ineffective [Recovering/Resolving]
  - Pneumonitis [Recovering/Resolving]
  - Respiratory failure [Recovering/Resolving]

NARRATIVE: CASE EVENT DATE: 20190606
